FAERS Safety Report 10227191 (Version 8)
Quarter: 2015Q4

REPORT INFORMATION
  Report Type: Report from Study
  Country: CH (occurrence: CH)
  Receive Date: 20140610
  Receipt Date: 20151110
  Transmission Date: 20160304
  Serious: Yes (Hospitalization)
  Sender: FDA-Public Use
  Company Number: CH-ROCHE-1414696

PATIENT
  Age: 61 Year
  Sex: Male
  Weight: 67.7 kg

DRUGS (70)
  1. CYCLOPHOSPHAMIDE. [Suspect]
     Active Substance: CYCLOPHOSPHAMIDE
     Dosage: CYCLE 5, DAY 3: PLANNED DOSE- 250 MG/M2?INFUSION RATE: NOT AVAILABLE
     Route: 042
     Dates: start: 20140306, end: 20140306
  2. CYCLOPHOSPHAMIDE. [Suspect]
     Active Substance: CYCLOPHOSPHAMIDE
     Dosage: CYCLE 6, DAY 3: PLANNED DOSE- 250 MG/M2?INFUSION RATE: NOT AVAILABLE
     Route: 042
     Dates: start: 20140404, end: 20140404
  3. DAFALGAN [Concomitant]
     Active Substance: ACETAMINOPHEN
     Indication: PROPHYLAXIS
     Dosage: FOR UNSPECIFIED ADVERSE EVENT
     Route: 048
     Dates: start: 20131127, end: 20140409
  4. DAFALGAN [Concomitant]
     Active Substance: ACETAMINOPHEN
     Route: 048
     Dates: start: 20131113, end: 20140409
  5. ZOFRAN [Concomitant]
     Active Substance: ONDANSETRON HYDROCHLORIDE
     Route: 048
     Dates: start: 20140115, end: 20140122
  6. TAVEGYL [Concomitant]
     Active Substance: CLEMASTINE FUMARATE
     Indication: PROPHYLAXIS
     Route: 042
     Dates: start: 20131113, end: 20140402
  7. AUGMENTIN [Concomitant]
     Active Substance: AMOXICILLIN\CLAVULANATE POTASSIUM
     Route: 048
     Dates: start: 20150310, end: 20150325
  8. FLUDARABINE [Suspect]
     Active Substance: FLUDARABINE PHOSPHATE
     Dosage: CYCLE 1, DAY 2: PLANNED DOSE: 25 MG/M2?INFUSION RATE: NOT AVAILABLE
     Route: 042
     Dates: start: 20131114, end: 20131114
  9. FLUDARABINE [Suspect]
     Active Substance: FLUDARABINE PHOSPHATE
     Dosage: CYCLE 6, DAY 3: PLANNED DOSE: 25 MG/M2?INFUSION RATE: NOT AVAILABLE
     Route: 042
     Dates: start: 20140404, end: 20140404
  10. CYCLOPHOSPHAMIDE. [Suspect]
     Active Substance: CYCLOPHOSPHAMIDE
     Dosage: CYCLE 3, DAY 3: PLANNED DOSE- 250 MG/M2?INFUSION RATE: NOT AVAILABLE
     Route: 042
     Dates: start: 20140110, end: 20140110
  11. CEFEPIME [Concomitant]
     Active Substance: CEFEPIME HYDROCHLORIDE
     Route: 048
     Dates: start: 20140507, end: 20140514
  12. ZOFRAN [Concomitant]
     Active Substance: ONDANSETRON HYDROCHLORIDE
     Route: 048
     Dates: start: 20140409, end: 20140603
  13. RINGERS LACTATE [Concomitant]
     Active Substance: CALCIUM CHLORIDE\POTASSIUM CHLORIDE\SODIUM CHLORIDE\SODIUM LACTATE
     Route: 042
     Dates: start: 20140507, end: 20140514
  14. FLUDARABINE [Suspect]
     Active Substance: FLUDARABINE PHOSPHATE
     Dosage: CYCLE 3, DAY 1: PLANNED DOSE: 25 MG/M2?INFUSION RATE: NOT AVAILABLE
     Route: 042
     Dates: start: 20140108, end: 20140108
  15. FLUDARABINE [Suspect]
     Active Substance: FLUDARABINE PHOSPHATE
     Dosage: CYCLE 4, DAY 1: PLANNED DOSE: 25 MG/M2?INFUSION RATE: NOT AVAILABLE
     Route: 042
     Dates: start: 20140205, end: 20140205
  16. FLUDARABINE [Suspect]
     Active Substance: FLUDARABINE PHOSPHATE
     Dosage: CYCLE 5, DAY 1: PLANNED DOSE: 25 MG/M2?INFUSION RATE: NOT AVAILABLE
     Route: 042
     Dates: start: 20140304, end: 20140304
  17. CYCLOPHOSPHAMIDE. [Suspect]
     Active Substance: CYCLOPHOSPHAMIDE
     Dosage: CYCLE 6, DAY 2: PLANNED DOSE- 250 MG/M2?INFUSION RATE: NOT AVAILABLE
     Route: 042
     Dates: start: 20140403, end: 20140403
  18. VALTREX [Concomitant]
     Active Substance: VALACYCLOVIR HYDROCHLORIDE
     Indication: PROPHYLAXIS
     Route: 048
     Dates: start: 20131113, end: 20140723
  19. EMEND [Concomitant]
     Active Substance: APREPITANT
     Route: 048
     Dates: start: 20140304, end: 20140304
  20. EMEND [Concomitant]
     Active Substance: APREPITANT
     Route: 048
     Dates: start: 20140305, end: 20140306
  21. EMEND [Concomitant]
     Active Substance: APREPITANT
     Route: 048
     Dates: start: 20140403, end: 20140404
  22. FLUDARABINE [Suspect]
     Active Substance: FLUDARABINE PHOSPHATE
     Dosage: CYCLE 3, DAY 3: PLANNED DOSE: 25 MG/M2?INFUSION RATE: NOT AVAILABLE
     Route: 042
     Dates: start: 20140110, end: 20140110
  23. CYCLOPHOSPHAMIDE. [Suspect]
     Active Substance: CYCLOPHOSPHAMIDE
     Dosage: CYCLE 2, DAY 1: PLANNED DOSE- 250 MG/M2?INFUSION RATE: NOT AVAILABLE
     Route: 042
     Dates: start: 20131211, end: 20131211
  24. CYCLOPHOSPHAMIDE. [Suspect]
     Active Substance: CYCLOPHOSPHAMIDE
     Dosage: CYCLE 4, DAY 3: PLANNED DOSE- 250 MG/M2?INFUSION RATE: NOT AVAILABLE
     Route: 042
     Dates: start: 20140207, end: 20140207
  25. NEXIUM [Concomitant]
     Active Substance: ESOMEPRAZOLE MAGNESIUM
     Indication: PROPHYLAXIS
     Route: 048
     Dates: start: 20140108, end: 20140212
  26. DEXPANTHENOL. [Concomitant]
     Active Substance: DEXPANTHENOL
     Route: 048
     Dates: start: 20140312, end: 20140402
  27. MUNDISAL (SLOVAKIA) [Concomitant]
     Route: 061
     Dates: start: 20140312, end: 20140402
  28. CLAMOXYL (SWITZERLAND) [Concomitant]
     Route: 048
     Dates: start: 20140515, end: 20140522
  29. OBINUTUZUMAB [Suspect]
     Active Substance: OBINUTUZUMAB
     Dosage: CYCLE 1, DAY 2: PLANNED DOSE - 975, ACTUAL DOSE: 975?PLANNED INFUSION RATE: 400, ACTUAL INFUSION RAT
     Route: 042
     Dates: start: 20131114, end: 20131114
  30. OBINUTUZUMAB [Suspect]
     Active Substance: OBINUTUZUMAB
     Dosage: DATE OF LAST DOSE PRIOR TO SAE: 02/APR/2014
     Route: 042
     Dates: start: 20131211, end: 20140402
  31. FLUDARABINE [Suspect]
     Active Substance: FLUDARABINE PHOSPHATE
     Dosage: CYCLE 2, DAY 2: PLANNED DOSE: 25 MG/M2?INFUSION RATE: NOT AVAILABLE
     Route: 042
     Dates: start: 20131212, end: 20131212
  32. FLUDARABINE [Suspect]
     Active Substance: FLUDARABINE PHOSPHATE
     Dosage: CYCLE 2, DAY 3: PLANNED DOSE: 25 MG/M2?INFUSION RATE: NOT AVAILABLE
     Route: 042
     Dates: start: 20131213, end: 20131213
  33. FLUDARABINE [Suspect]
     Active Substance: FLUDARABINE PHOSPHATE
     Dosage: CYCLE 4, DAY 3: PLANNED DOSE: 25 MG/M2?INFUSION RATE: NOT AVAILABLE
     Route: 042
     Dates: start: 20140207, end: 20140207
  34. CYCLOPHOSPHAMIDE. [Suspect]
     Active Substance: CYCLOPHOSPHAMIDE
     Dosage: CYCLE 1, DAY 2: PLANNED DOSE- 250 MG/M2?INFUSION RATE: NOT AVAILABLE
     Route: 042
     Dates: start: 20131114, end: 20131114
  35. CYCLOPHOSPHAMIDE. [Suspect]
     Active Substance: CYCLOPHOSPHAMIDE
     Dosage: CYCLE 2, DAY 3: PLANNED DOSE- 250 MG/M2?INFUSION RATE: NOT AVAILABLE
     Route: 042
     Dates: start: 20131213, end: 20131213
  36. CYCLOPHOSPHAMIDE. [Suspect]
     Active Substance: CYCLOPHOSPHAMIDE
     Dosage: CYCLE 3, DAY 2: PLANNED DOSE- 250 MG/M2?INFUSION RATE: NOT AVAILABLE
     Route: 042
     Dates: start: 20140109, end: 20140109
  37. CYCLOPHOSPHAMIDE. [Suspect]
     Active Substance: CYCLOPHOSPHAMIDE
     Dosage: CYCLE 5, DAY 1: PLANNED DOSE- 250 MG/M2?INFUSION RATE: NOT AVAILABLE
     Route: 042
     Dates: start: 20140304, end: 20140304
  38. NEXIUM [Concomitant]
     Active Substance: ESOMEPRAZOLE MAGNESIUM
     Route: 048
     Dates: start: 20140212, end: 20140723
  39. PREDNISOLONE. [Concomitant]
     Active Substance: PREDNISOLONE
     Indication: PROPHYLAXIS
     Dosage: DAY 1 AND 2 OF CYCLE 1 THEN DAY 1 OF EACH CYCLE, ONE HOUR BEFORE OBINUTUZUMAB INFUSION
     Route: 048
     Dates: start: 20131113, end: 20140402
  40. EXCIPIAL U LIPOLOTION [Concomitant]
     Dosage: ML
     Route: 061
     Dates: start: 20140320, end: 20140402
  41. EMEND [Concomitant]
     Active Substance: APREPITANT
     Route: 048
     Dates: start: 20140206, end: 20140207
  42. SYMBICORT [Concomitant]
     Active Substance: BUDESONIDE\FORMOTEROL FUMARATE DIHYDRATE
     Route: 048
     Dates: start: 20150310, end: 20150325
  43. OBINUTUZUMAB [Suspect]
     Active Substance: OBINUTUZUMAB
     Indication: CHRONIC LYMPHOCYTIC LEUKAEMIA
     Dosage: CYCLE 1, DAY 1: PLANNED DOSE - 25, ACTUAL DOSE: 25?PLANNED INFUSION RATE: 12.5, ACTUAL INFUSION RATE
     Route: 042
     Dates: start: 20131113, end: 20131113
  44. FLUDARABINE [Suspect]
     Active Substance: FLUDARABINE PHOSPHATE
     Dosage: CYCLE 1, DAY 3: PLANNED DOSE: 25 MG/M2?INFUSION RATE: NOT AVAILABLE
     Route: 042
     Dates: start: 20131115, end: 20131115
  45. FLUDARABINE [Suspect]
     Active Substance: FLUDARABINE PHOSPHATE
     Dosage: CYCLE 4, DAY 2: PLANNED DOSE: 25 MG/M2?INFUSION RATE: NOT AVAILABLE
     Route: 042
     Dates: start: 20140206, end: 20140206
  46. FLUDARABINE [Suspect]
     Active Substance: FLUDARABINE PHOSPHATE
     Dosage: CYCLE 5, DAY 2: PLANNED DOSE: 25 MG/M2?INFUSION RATE: NOT AVAILABLE
     Route: 042
     Dates: start: 20140305, end: 20140305
  47. FLUDARABINE [Suspect]
     Active Substance: FLUDARABINE PHOSPHATE
     Dosage: CYCLE 5, DAY 3: PLANNED DOSE: 25 MG/M2?INFUSION RATE: NOT AVAILABLE
     Route: 042
     Dates: start: 20140306, end: 20140306
  48. FLUDARABINE [Suspect]
     Active Substance: FLUDARABINE PHOSPHATE
     Dosage: CYCLE 6, DAY 1: PLANNED DOSE: 25 MG/M2?INFUSION RATE: NOT AVAILABLE
     Route: 042
     Dates: start: 20140402, end: 20140402
  49. FLUDARABINE [Suspect]
     Active Substance: FLUDARABINE PHOSPHATE
     Dosage: CYCLE 6, DAY 2: PLANNED DOSE: 25 MG/M2?INFUSION RATE: NOT AVAILABLE
     Route: 042
     Dates: start: 20140403, end: 20140403
  50. CYCLOPHOSPHAMIDE. [Suspect]
     Active Substance: CYCLOPHOSPHAMIDE
     Dosage: CYCLE 2, DAY 2: PLANNED DOSE- 250 MG/M2?INFUSION RATE: NOT AVAILABLE
     Route: 042
     Dates: start: 20131212, end: 20131212
  51. CYCLOPHOSPHAMIDE. [Suspect]
     Active Substance: CYCLOPHOSPHAMIDE
     Dosage: CYCLE 3, DAY 1: PLANNED DOSE- 250 MG/M2?INFUSION RATE: NOT AVAILABLE
     Route: 042
     Dates: start: 20140108, end: 20140108
  52. CYCLOPHOSPHAMIDE. [Suspect]
     Active Substance: CYCLOPHOSPHAMIDE
     Dosage: CYCLE 6, DAY 1: PLANNED DOSE- 250 MG/M2?INFUSION RATE: NOT AVAILABLE
     Route: 042
     Dates: start: 20140402, end: 20140402
  53. ALLOPURINOL. [Concomitant]
     Active Substance: ALLOPURINOL
     Indication: PROPHYLAXIS
     Route: 048
     Dates: start: 20131112, end: 20131211
  54. EMEND [Concomitant]
     Active Substance: APREPITANT
     Indication: PROPHYLAXIS
     Route: 048
     Dates: start: 20140205, end: 20140205
  55. OBINUTUZUMAB [Suspect]
     Active Substance: OBINUTUZUMAB
     Dosage: CYCLE 1, DAY 8: PLANNED DOSE - 1000, ACTUAL DOSE: 1000?PLANNED INFUSION RATE: 400, ACTUAL INFUSION R
     Route: 042
     Dates: start: 20131120, end: 20131120
  56. OBINUTUZUMAB [Suspect]
     Active Substance: OBINUTUZUMAB
     Dosage: CYCLE 1, DAY 15: PLANNED DOSE - 100, ACTUAL DOSE: 1000?PLANNED INFUSION RATE: 400, ACTUAL INFUSION R
     Route: 042
     Dates: start: 20131127, end: 20131127
  57. FLUDARABINE [Suspect]
     Active Substance: FLUDARABINE PHOSPHATE
     Dosage: CYCLE 2, DAY 1: PLANNED DOSE: 25 MG/M2?INFUSION RATE: NOT AVAILABLE
     Route: 042
     Dates: start: 20131211, end: 20131211
  58. FLUDARABINE [Suspect]
     Active Substance: FLUDARABINE PHOSPHATE
     Dosage: CYCLE 3, DAY 2: PLANNED DOSE: 25 MG/M2?INFUSION RATE: NOT AVAILABLE
     Route: 042
     Dates: start: 20140109, end: 20140109
  59. CYCLOPHOSPHAMIDE. [Suspect]
     Active Substance: CYCLOPHOSPHAMIDE
     Dosage: CYCLE 4, DAY 1: PLANNED DOSE- 250 MG/M2?INFUSION RATE: NOT AVAILABLE
     Route: 042
     Dates: start: 20140205, end: 20140205
  60. CYCLOPHOSPHAMIDE. [Suspect]
     Active Substance: CYCLOPHOSPHAMIDE
     Dosage: CYCLE 4, DAY 2: PLANNED DOSE- 250 MG/M2?INFUSION RATE: NOT AVAILABLE
     Route: 042
     Dates: start: 20140206, end: 20140206
  61. BACTRIM [Concomitant]
     Active Substance: SULFAMETHOXAZOLE\TRIMETHOPRIM
     Indication: PROPHYLAXIS
     Dosage: MONDAY/WEDNESDAY/FRIDAY
     Route: 048
     Dates: start: 20131113, end: 20140723
  62. SOLCOSERYL [Concomitant]
     Active Substance: SOLCOSERYL
     Dosage: PULP
     Route: 048
     Dates: start: 20140312, end: 20140402
  63. EMEND [Concomitant]
     Active Substance: APREPITANT
     Route: 048
     Dates: start: 20140402, end: 20140402
  64. FLUDARABINE [Suspect]
     Active Substance: FLUDARABINE PHOSPHATE
     Indication: CHRONIC LYMPHOCYTIC LEUKAEMIA
     Dosage: CYCLE 1, DAY1: PLANNED DOSE: 25 MG/KG?INFUSION RATE: NOT AVAILABLE?LAST DOSE PRIOR TO SAE: 04/APR/20
     Route: 042
     Dates: start: 20131113, end: 20131113
  65. CYCLOPHOSPHAMIDE. [Suspect]
     Active Substance: CYCLOPHOSPHAMIDE
     Indication: CHRONIC LYMPHOCYTIC LEUKAEMIA
     Dosage: CYCLE 1, DAY 1: ?INFUSION RATE: NOT AVAILABLE?LAST DOSE PRIOR TO SAE: 04/APR/2014
     Route: 042
     Dates: start: 20131113, end: 20131113
  66. CYCLOPHOSPHAMIDE. [Suspect]
     Active Substance: CYCLOPHOSPHAMIDE
     Dosage: CYCLE 1, DAY 3: PLANNED DOSE- 250 MG/M2?INFUSION RATE: NOT AVAILABLE
     Route: 042
     Dates: start: 20131115, end: 20131115
  67. CYCLOPHOSPHAMIDE. [Suspect]
     Active Substance: CYCLOPHOSPHAMIDE
     Dosage: CYCLE 5, DAY 2: PLANNED DOSE- 250 MG/M2?INFUSION RATE: NOT AVAILABLE
     Route: 042
     Dates: start: 20140305, end: 20140305
  68. CEFEPIME [Concomitant]
     Active Substance: CEFEPIME HYDROCHLORIDE
     Route: 042
     Dates: start: 20131223, end: 20131226
  69. IMODIUM [Concomitant]
     Active Substance: LOPERAMIDE HYDROCHLORIDE
     Route: 048
     Dates: start: 20140310, end: 20140323
  70. IMODIUM [Concomitant]
     Active Substance: LOPERAMIDE HYDROCHLORIDE
     Route: 048
     Dates: start: 20140409, end: 20140603

REACTIONS (1)
  - Fungal oesophagitis [Recovered/Resolved]

NARRATIVE: CASE EVENT DATE: 20140604
